FAERS Safety Report 6370083-0 (Version None)
Quarter: 2009Q3

REPORT INFORMATION
  Report Type: 
  Country: None (occurrence: None)
  Receive Date: 20090923
  Receipt Date: 20070405
  Transmission Date: 20100115
  Serious: Yes (Hospitalization)
  Sender: FDA-Public Use
  Company Number: US-ASTRAZENECA-2006UW22208

PATIENT
  Age: 49 Year
  Sex: Female
  Weight: 77.6 kg

DRUGS (13)
  1. SEROQUEL [Suspect]
     Indication: SLEEP DISORDER
     Dosage: 200 AND 400 MG
     Route: 048
     Dates: start: 20020701, end: 20050701
  2. SEROQUEL [Suspect]
     Dosage: 25 MG - 400 MG
     Route: 048
     Dates: start: 20031107
  3. RISPERDAL [Concomitant]
  4. ZYPREXA [Concomitant]
  5. LITHIUM [Concomitant]
  6. XANAX [Concomitant]
  7. KLONOPIN [Concomitant]
  8. PROZAC [Concomitant]
  9. VALIUM [Concomitant]
  10. PAXIL CR [Concomitant]
  11. NORTRIPTYLINE HCL [Concomitant]
  12. WELLBUTRIN [Concomitant]
  13. EFFEXOR [Concomitant]

REACTIONS (2)
  - DIABETES MELLITUS [None]
  - TYPE 2 DIABETES MELLITUS [None]
